FAERS Safety Report 8824306 (Version 1)
Quarter: 2012Q4

REPORT INFORMATION
  Report Type: 
  Country: US (occurrence: US)
  Receive Date: 20121004
  Receipt Date: 20121004
  Transmission Date: 20130627
  Serious: Yes (Disabling, Other)
  Sender: FDA-Public Use
  Company Number: US-CELGENEUS-163-21880-12093429

PATIENT
  Age: 61 Year
  Sex: Female

DRUGS (4)
  1. REVLIMID [Suspect]
     Indication: CHRONIC LYMPHOID LEUKEMIA
     Dosage: 5 Milligram
     Route: 048
     Dates: start: 20120702, end: 20120907
  2. LORTAB [Concomitant]
     Indication: DRUG USE FOR UNKNOWN INDICATION
     Route: 065
     Dates: end: 20120907
  3. MIDODRINE [Concomitant]
     Indication: BLOOD PRESSURE
     Route: 065
  4. LISINOPRIL [Concomitant]
     Indication: GOUT
     Route: 065

REACTIONS (4)
  - Amnesia [Not Recovered/Not Resolved]
  - Convulsion [Not Recovered/Not Resolved]
  - Disorientation [Not Recovered/Not Resolved]
  - Syncope [Not Recovered/Not Resolved]
